FAERS Safety Report 5562705-9 (Version None)
Quarter: 2007Q4

REPORT INFORMATION
  Report Type: 
  Country: None (occurrence: None)
  Receive Date: 20071211
  Receipt Date: 20071211
  Transmission Date: 20080405
  Serious: No
  Sender: FDA-Public Use
  Company Number: None

PATIENT
  Age: 78 Year
  Sex: Male

DRUGS (1)
  1. METHOCARBAMOL [Suspect]
     Dosage: 750MG BID PO
     Route: 048
     Dates: start: 20070822, end: 20071210

REACTIONS (1)
  - RASH [None]
